FAERS Safety Report 25182770 (Version 1)
Quarter: 2025Q2

REPORT INFORMATION
  Report Type: Spontaneous
  Country: US (occurrence: US)
  Receive Date: 20250410
  Receipt Date: 20250410
  Transmission Date: 20250716
  Serious: No
  Sender: OPTINOSE INC
  Company Number: US-OptiNose US, Inc-2024OPT000108

PATIENT
  Sex: Female

DRUGS (1)
  1. XHANCE [Suspect]
     Active Substance: FLUTICASONE PROPIONATE
     Indication: Anosmia
     Route: 045

REACTIONS (4)
  - Viral infection [Unknown]
  - Drug ineffective for unapproved indication [Unknown]
  - Expired device used [Unknown]
  - Off label use [Unknown]
